FAERS Safety Report 7190383-4 (Version None)
Quarter: 2010Q4

REPORT INFORMATION
  Report Type: 
  Country: None (occurrence: None)
  Receive Date: 20101223
  Receipt Date: 20101217
  Transmission Date: 20110411
  Serious: Yes (Other)
  Sender: FDA-Public Use
  Company Number: US-GENZYME-CAMP-1001216

PATIENT
  Age: 56 Year
  Sex: Male

DRUGS (2)
  1. CAMPATH [Suspect]
     Indication: CHRONIC LYMPHOCYTIC LEUKAEMIA
     Dosage: 3 MG, UNK
     Route: 058
     Dates: start: 20101213
  2. CAMPATH [Suspect]
     Dosage: 10 MG, UNK
     Route: 058
     Dates: start: 20101215

REACTIONS (2)
  - CELLULITIS [None]
  - INJECTION SITE REACTION [None]
